FAERS Safety Report 8837407 (Version 1)
Quarter: 2012Q4

REPORT INFORMATION
  Report Type: 
  Country: US (occurrence: US)
  Receive Date: 20121012
  Receipt Date: 20121012
  Transmission Date: 20130627
  Serious: Yes (Hospitalization, Other)
  Sender: FDA-Public Use
  Company Number: PHEH2012US020065

PATIENT
  Sex: Male

DRUGS (1)
  1. AREDIA [Suspect]
     Indication: MULTIPLE MYELOMA

REACTIONS (9)
  - Pneumonitis [Unknown]
  - Pyrexia [Unknown]
  - Cholelithiasis [Unknown]
  - Spinal disorder [Unknown]
  - Vertebral column mass [Unknown]
  - Osteolysis [Unknown]
  - Post herpetic neuralgia [Unknown]
  - Spinal osteoarthritis [Unknown]
  - Prostatic calcification [Unknown]
